FAERS Safety Report 17554538 (Version 5)
Quarter: 2021Q3

REPORT INFORMATION
  Report Type: Report from Study
  Country: PA (occurrence: PA)
  Receive Date: 20200318
  Receipt Date: 20210924
  Transmission Date: 20211014
  Serious: Yes (Hospitalization)
  Sender: FDA-Public Use
  Company Number: NVSC2020PA074443

PATIENT
  Age: 46 Year
  Sex: Male
  Weight: 77.11 kg

DRUGS (4)
  1. CARBAMAZEPINE. [Suspect]
     Active Substance: CARBAMAZEPINE
     Indication: PAIN
     Route: 065
  2. IRBESARTAN. [Suspect]
     Active Substance: IRBESARTAN
     Indication: PRODUCT USED FOR UNKNOWN INDICATION
     Route: 065
  3. INDAPAMIDE. [Concomitant]
     Active Substance: INDAPAMIDE
     Indication: PRODUCT USED FOR UNKNOWN INDICATION
     Route: 065
  4. GILENYA [Suspect]
     Active Substance: FINGOLIMOD HYDROCHLORIDE
     Indication: MULTIPLE SCLEROSIS
     Dosage: 0.5 MG, QD
     Route: 048
     Dates: start: 20191024

REACTIONS (6)
  - Cholelithiasis [Not Recovered/Not Resolved]
  - Blood bilirubin increased [Unknown]
  - Back pain [Recovered/Resolved]
  - Product use in unapproved indication [Unknown]
  - Anxiety [Unknown]
  - Biliary colic [Unknown]

NARRATIVE: CASE EVENT DATE: 20200307
